FAERS Safety Report 10120874 (Version 1)
Quarter: 2014Q2

REPORT INFORMATION
  Report Type: Spontaneous
  Country: CH (occurrence: CH)
  Receive Date: 20140425
  Receipt Date: 20140425
  Transmission Date: 20141212
  Serious: Yes (Other)
  Sender: FDA-Public Use
  Company Number: CH-BRISTOL-MYERS SQUIBB COMPANY-20639381

PATIENT
  Age: 62 Year
  Sex: Female

DRUGS (1)
  1. ABATACEPT [Suspect]
     Route: 042
     Dates: start: 200802

REACTIONS (5)
  - Palpitations [Unknown]
  - Aphthous stomatitis [Unknown]
  - Gingivitis [Unknown]
  - Dry eye [Unknown]
  - Tooth disorder [Unknown]
